FAERS Safety Report 19406584 (Version 1)
Quarter: 2021Q2

REPORT INFORMATION
  Report Type: Spontaneous
  Country: CH (occurrence: CH)
  Receive Date: 20210611
  Receipt Date: 20210611
  Transmission Date: 20210717
  Serious: Yes (Other)
  Sender: FDA-Public Use
  Company Number: NVSC2021CH091831

PATIENT
  Age: 50 Year
  Sex: Female

DRUGS (2)
  1. TERBINAFINE. [Suspect]
     Active Substance: TERBINAFINE
     Indication: TINEA PEDIS
     Dosage: 250 MG, QD
     Route: 048
     Dates: start: 20190222
  2. ELOCOM [Concomitant]
     Active Substance: MOMETASONE FUROATE
     Indication: PRODUCT USED FOR UNKNOWN INDICATION
     Dosage: UNK
     Route: 065
     Dates: start: 20190228, end: 20190307

REACTIONS (5)
  - Concomitant disease aggravated [Recovered/Resolved]
  - Erythema multiforme [Recovered/Resolved]
  - Lichenification [Recovered/Resolved]
  - Papule [Recovered/Resolved]
  - Pruritus [Recovered/Resolved]

NARRATIVE: CASE EVENT DATE: 20190225
